FAERS Safety Report 19483817 (Version 2)
Quarter: 2021Q3

REPORT INFORMATION
  Report Type: Spontaneous
  Country: US (occurrence: US)
  Receive Date: 20210701
  Receipt Date: 20210713
  Transmission Date: 20211014
  Serious: Yes (Other)
  Sender: FDA-Public Use
  Company Number: US-PFIZER INC-2021709484

PATIENT
  Age: 68 Year
  Sex: Female

DRUGS (2)
  1. XELJANZ XR [Suspect]
     Active Substance: TOFACITINIB CITRATE
     Dosage: 11 MG
     Dates: start: 20210514
  2. XELJANZ XR [Suspect]
     Active Substance: TOFACITINIB CITRATE
     Dosage: UNK
     Dates: start: 202103

REACTIONS (12)
  - Abdominal discomfort [Recovered/Resolved]
  - Sjogren^s syndrome [Unknown]
  - Vitamin B12 decreased [Unknown]
  - Blood potassium increased [Unknown]
  - Blood urea nitrogen/creatinine ratio increased [Unknown]
  - Muscle spasms [Unknown]
  - Abdominal distension [Unknown]
  - Blood chloride increased [Unknown]
  - Fatigue [Unknown]
  - Heart rate decreased [Unknown]
  - Alopecia [Unknown]
  - Arthralgia [Unknown]
